FAERS Safety Report 18333496 (Version 1)
Quarter: 2020Q4

REPORT INFORMATION
  Report Type: Spontaneous
  Country: PT (occurrence: PT)
  Receive Date: 20201001
  Receipt Date: 20201001
  Transmission Date: 20210113
  Serious: Yes (Other)
  Sender: FDA-Public Use
  Company Number: PT-ASTRAZENECA-2020SF26071

PATIENT
  Age: 54 Year
  Sex: Male

DRUGS (1)
  1. OLAPARIB. [Suspect]
     Active Substance: OLAPARIB
     Indication: PROSTATE CANCER
     Route: 048
     Dates: start: 202001, end: 202008

REACTIONS (2)
  - Product use in unapproved indication [Unknown]
  - Prostate cancer [Unknown]

NARRATIVE: CASE EVENT DATE: 2020
